FAERS Safety Report 7891205-6 (Version None)
Quarter: 2011Q4

REPORT INFORMATION
  Report Type: 
  Country: None (occurrence: None)
  Receive Date: 20111103
  Receipt Date: 20110801
  Transmission Date: 20120403
  Serious: No
  Sender: FDA-Public Use
  Company Number: US-AMGEN-USASP2011030474

PATIENT
  Age: 34 Year
  Weight: 56.689 kg

DRUGS (1)
  1. ENBREL [Suspect]
     Indication: ANKYLOSING SPONDYLITIS
     Dosage: 50 MG, QWK
     Route: 058
     Dates: start: 20110603, end: 20110823

REACTIONS (9)
  - SINUSITIS [None]
  - CHILLS [None]
  - COUGH [None]
  - RHINORRHOEA [None]
  - OROPHARYNGEAL PAIN [None]
  - DRUG INEFFECTIVE [None]
  - FATIGUE [None]
  - INJECTION SITE ERYTHEMA [None]
  - HEADACHE [None]
